FAERS Safety Report 19313865 (Version 1)
Quarter: 2021Q2

REPORT INFORMATION
  Report Type: Spontaneous
  Country: US (occurrence: US)
  Receive Date: 20210527
  Receipt Date: 20210527
  Transmission Date: 20210717
  Serious: No
  Sender: FDA-Public Use
  Company Number: None

PATIENT
  Sex: Female
  Weight: 86.64 kg

DRUGS (2)
  1. FLUTICASONE SALMETEROL [Suspect]
     Active Substance: FLUTICASONE PROPIONATE\SALMETEROL XINAFOATE
     Route: 055
     Dates: start: 20210414
  2. FLUTICASONE SALMETEROL [Suspect]
     Active Substance: FLUTICASONE PROPIONATE\SALMETEROL XINAFOATE
     Indication: ASTHMA
     Route: 055
     Dates: start: 20191007

REACTIONS (23)
  - Fatigue [None]
  - Somnolence [None]
  - Dyspnoea [None]
  - Productive cough [None]
  - Sleep apnoea syndrome [None]
  - Sputum abnormal [None]
  - Migraine [None]
  - Cough [None]
  - Headache [None]
  - Sinus congestion [None]
  - Middle insomnia [None]
  - Arthralgia [None]
  - Stress [None]
  - Substance use [None]
  - Viral upper respiratory tract infection [None]
  - Muscle tightness [None]
  - Exposure to fungus [None]
  - Multiple allergies [None]
  - Anxiety [None]
  - Loss of employment [None]
  - Chest discomfort [None]
  - Dyspnoea exertional [None]
  - Foot fracture [None]
